FAERS Safety Report 23823209 (Version 2)
Quarter: 2024Q2

REPORT INFORMATION
  Report Type: Spontaneous
  Country: EG (occurrence: EG)
  Receive Date: 20240507
  Receipt Date: 20240517
  Transmission Date: 20240715
  Serious: Yes (Other)
  Sender: FDA-Public Use
  Company Number: EG-NOVOPROD-1213264

PATIENT
  Sex: Female
  Weight: 90 kg

DRUGS (4)
  1. INSULIN HUMAN [Suspect]
     Active Substance: INSULIN HUMAN
     Dosage: 60 IU, QD (40IU AM +20 IU PM
     Route: 058
  2. INSULIN HUMAN [Suspect]
     Active Substance: INSULIN HUMAN
     Indication: Diabetes mellitus
     Dosage: 80 IU, QD (50U/MORNING AND 30U/ NIGHT)
  3. CIDOPHAGE [Concomitant]
     Indication: Diabetes mellitus
     Dosage: 1 TAB/DAY
  4. BENFOTIAMINE\CYANOCOBALAMIN\PYRIDOXINE HYDROCHLORIDE [Concomitant]
     Active Substance: BENFOTIAMINE\CYANOCOBALAMIN\PYRIDOXINE HYDROCHLORIDE
     Indication: Supplementation therapy
     Dosage: 1TAB/DAY

REACTIONS (4)
  - Diabetic hyperglycaemic coma [Unknown]
  - Rheumatic disorder [Not Recovered/Not Resolved]
  - Oedema peripheral [Unknown]
  - Drug ineffective [Unknown]
